FAERS Safety Report 6203743-2 (Version None)
Quarter: 2009Q2

REPORT INFORMATION
  Report Type: 
  Country: None (occurrence: None)
  Receive Date: 20090521
  Receipt Date: 20090511
  Transmission Date: 20091009
  Serious: Yes (Death, Other)
  Sender: FDA-Public Use
  Company Number: GXKR2009US05676

PATIENT
  Age: 7 Year
  Sex: 0

DRUGS (3)
  1. CYCLOSPORINE [Suspect]
     Indication: HISTIOCYTOSIS HAEMATOPHAGIC
  2. DEXAMETHASONE TAB [Concomitant]
  3. ETOPOSIDE [Concomitant]

REACTIONS (6)
  - CEREBRAL HAEMORRHAGE [None]
  - DRUG LEVEL ABOVE THERAPEUTIC [None]
  - HYPERTENSION [None]
  - MENTAL STATUS CHANGES [None]
  - NEUROTOXICITY [None]
  - SOMNOLENCE [None]
